FAERS Safety Report 11237996 (Version 2)
Quarter: 2015Q3

REPORT INFORMATION
  Report Type: Spontaneous
  Country: US (occurrence: US)
  Receive Date: 20150703
  Receipt Date: 20150722
  Transmission Date: 20151125
  Serious: Yes (Hospitalization)
  Sender: FDA-Public Use
  Company Number: US-009507513-1506USA015358

PATIENT
  Age: 57 Year
  Sex: Female

DRUGS (12)
  1. HEXADROL [Concomitant]
     Active Substance: DEXAMETHASONE
     Dosage: 2 MG, THREE TIMES DAILY (TID)
     Route: 048
  2. TEMODAR [Suspect]
     Active Substance: TEMOZOLOMIDE
     Indication: GLIOBLASTOMA MULTIFORME
     Dosage: 140 MG, DAILY (QD)
     Route: 048
  3. QUINAPRIL HYDROCHLORIDE. [Concomitant]
     Active Substance: QUINAPRIL HYDROCHLORIDE
     Dosage: 20 MG, TWICE DAILY (BID)
  4. VORINOSTAT [Interacting]
     Active Substance: VORINOSTAT
     Indication: GLIOBLASTOMA MULTIFORME
     Dosage: 300 MG, DAILY (QD)
     Route: 048
  5. OMEGA-3 MARINE TRIGLYCERIDES [Concomitant]
     Active Substance: FISH OIL
     Dosage: 1 TABLET (1 DF), QD
  6. PRAVASTATIN [Concomitant]
     Active Substance: PRAVASTATIN\PRAVASTATIN SODIUM
     Dosage: 40 MG, DAILY (QD)
  7. LEVETIRACETAM. [Concomitant]
     Active Substance: LEVETIRACETAM
     Dosage: 500 MG,EVERY 12H (Q12H)
  8. DAPSONE. [Interacting]
     Active Substance: DAPSONE
     Dosage: 100 MG, DAILY (QD)
  9. MELOXICAM. [Concomitant]
     Active Substance: MELOXICAM
     Dosage: 15 MG, DAILY (QD)
     Route: 048
  10. LANSOPRAZOLE. [Concomitant]
     Active Substance: LANSOPRAZOLE
     Dosage: 15 MG, DAILY (QD)
  11. ACETAMINOPHEN (+) HYDROCODONE BITARTRATE [Concomitant]
     Active Substance: ACETAMINOPHEN\HYDROCODONE
     Dosage: 5-325 MG EVERY 4-6 H (PRN)
  12. UBIQUINONES (UNSPECIFIED) [Concomitant]
     Dosage: 10 MG, DAILY (QD)

REACTIONS (2)
  - Drug interaction [Unknown]
  - Cytopenia [Unknown]
